FAERS Safety Report 6786681-6 (Version None)
Quarter: 2010Q2

REPORT INFORMATION
  Report Type: 
  Country: None (occurrence: None)
  Receive Date: 20100623
  Receipt Date: 20100611
  Transmission Date: 20101027
  Serious: Yes (Other)
  Sender: FDA-Public Use
  Company Number: SE-PFIZER INC-2010073299

PATIENT
  Age: 71 Year
  Sex: Female

DRUGS (8)
  1. SALAZOPYRIN [Suspect]
     Indication: RHEUMATOID ARTHRITIS
     Dosage: UNK
     Dates: start: 20090401
  2. SPIRIVA [Concomitant]
     Dosage: UNK
  3. SYMBICORT [Concomitant]
     Dosage: UNK
  4. PREDNISOLONE [Concomitant]
     Dosage: 5 MG A DAY
  5. BRICANYL [Concomitant]
     Dosage: UNK
  6. DOXYFERM [Concomitant]
     Dosage: UNK
  7. METHOTREXATE [Concomitant]
     Dosage: UNK
     Dates: end: 20100401
  8. METOPROLOL [Concomitant]
     Dosage: UNK

REACTIONS (3)
  - LUNG INFECTION [None]
  - TINNITUS [None]
  - TOTAL LUNG CAPACITY DECREASED [None]
